FAERS Safety Report 23623318 (Version 3)
Quarter: 2024Q2

REPORT INFORMATION
  Report Type: Spontaneous
  Country: US (occurrence: US)
  Receive Date: 20240312
  Receipt Date: 20240401
  Transmission Date: 20240716
  Serious: No
  Sender: FDA-Public Use
  Company Number: US-BIOGEN-2024BI01254180

PATIENT
  Sex: Male

DRUGS (1)
  1. TYSABRI [Suspect]
     Active Substance: NATALIZUMAB
     Indication: Multiple sclerosis
     Route: 050
     Dates: start: 20090604

REACTIONS (9)
  - Inappropriate schedule of product administration [Unknown]
  - Gait inability [Unknown]
  - Hypoaesthesia [Unknown]
  - Aphasia [Unknown]
  - Chest pain [Unknown]
  - Stress [Unknown]
  - Multiple sclerosis relapse [Unknown]
  - Hypertension [Not Recovered/Not Resolved]
  - Nausea [Unknown]
